FAERS Safety Report 8672778 (Version 3)
Quarter: 2013Q1

REPORT INFORMATION
  Report Type: Report from Study
  Country: US (occurrence: US)
  Receive Date: 20120717
  Receipt Date: 20130114
  Transmission Date: 20140127
  Serious: Yes (Other)
  Sender: FDA-Public Use
  Company Number: US-JNJFOC-20120705326

PATIENT
  Sex: Female

DRUGS (1)
  1. DOXORUBICIN HYDROCHLORIDE (DOXIL) [Suspect]
     Indication: OVARIAN CANCER
     Dosage: EVERY 4 WEEKS
     Route: 042
     Dates: start: 20120630, end: 20121212

REACTIONS (4)
  - Neuropathy peripheral [Not Recovered/Not Resolved]
  - Sensation of heaviness [Not Recovered/Not Resolved]
  - Mucosal inflammation [Recovering/Resolving]
  - Laboratory test abnormal [Unknown]
